FAERS Safety Report 15725747 (Version 1)
Quarter: 2018Q4

REPORT INFORMATION
  Report Type: Spontaneous
  Country: US (occurrence: US)
  Receive Date: 20181215
  Receipt Date: 20181215
  Transmission Date: 20190205
  Serious: No
  Sender: FDA-Public Use
  Company Number: US-JNJFOC-20181138599

PATIENT
  Sex: Female

DRUGS (6)
  1. ATIVAN [Concomitant]
     Active Substance: LORAZEPAM
     Indication: ANXIETY
     Route: 065
     Dates: start: 1983
  2. XARELTO [Suspect]
     Active Substance: RIVAROXABAN
     Indication: JUGULAR VEIN THROMBOSIS
     Route: 048
     Dates: start: 2017
  3. XARELTO [Suspect]
     Active Substance: RIVAROXABAN
     Indication: INTRACRANIAL ANEURYSM
     Route: 048
     Dates: start: 2017
  4. LOSARTAN AND HYDROCHLOROTHIAZIDE [Concomitant]
     Active Substance: HYDROCHLOROTHIAZIDE\LOSARTAN POTASSIUM
     Indication: HYPERTENSION
     Route: 065
     Dates: start: 2017
  5. CYMBALTA [Concomitant]
     Active Substance: DULOXETINE HYDROCHLORIDE
     Indication: DEPRESSION
     Route: 065
  6. CYMBALTA [Concomitant]
     Active Substance: DULOXETINE HYDROCHLORIDE
     Indication: DEPRESSION
     Route: 065
     Dates: start: 2008

REACTIONS (5)
  - Product use in unapproved indication [Unknown]
  - Alopecia [Not Recovered/Not Resolved]
  - Coagulopathy [Not Recovered/Not Resolved]
  - Off label use [Unknown]
  - Headache [Not Recovered/Not Resolved]

NARRATIVE: CASE EVENT DATE: 2017
